FAERS Safety Report 17803840 (Version 1)
Quarter: 2020Q2

REPORT INFORMATION
  Report Type: Spontaneous
  Country: US (occurrence: US)
  Receive Date: 20200519
  Receipt Date: 20200519
  Transmission Date: 20200714
  Serious: Yes (Death)
  Sender: FDA-Public Use
  Company Number: US-FARMAPROD-202004-0593

PATIENT
  Age: 64 Year
  Sex: Male

DRUGS (3)
  1. PROKERA STEM CELL LENS [Concomitant]
  2. OXERVATE [Suspect]
     Active Substance: CENEGERMIN-BKBJ
     Indication: NEUROTROPHIC KERATOPATHY
     Route: 047
  3. EYE DROPS [Concomitant]
     Active Substance: UNSPECIFIED INGREDIENT
     Route: 047

REACTIONS (2)
  - Death [Fatal]
  - Eye pain [Unknown]

NARRATIVE: CASE EVENT DATE: 20200503
